FAERS Safety Report 5211029-8 (Version None)
Quarter: 2007Q1

REPORT INFORMATION
  Report Type: 
  Country: None (occurrence: None)
  Receive Date: 20070117
  Receipt Date: 20070105
  Transmission Date: 20070707
  Serious: Yes (Other)
  Sender: FDA-Public Use
  Company Number: US-PFIZER INC-2007002238

PATIENT
  Sex: Female
  Weight: 54.4 kg

DRUGS (4)
  1. AROMASIN [Suspect]
     Indication: BREAST CANCER
  2. DAYPRO CAPLET [Suspect]
     Indication: ARTHRITIS
  3. OXAZEPAM [Concomitant]
  4. DYAZIDE [Concomitant]
     Indication: FLUID RETENTION

REACTIONS (4)
  - ARTHRITIS [None]
  - OSTEOPENIA [None]
  - VARICOSE VEIN [None]
  - VARICOSE VEIN RUPTURED [None]
